FAERS Safety Report 10791877 (Version 1)
Quarter: 2015Q1

REPORT INFORMATION
  Report Type: Spontaneous
  Country: US (occurrence: US)
  Receive Date: 20150213
  Receipt Date: 20150213
  Transmission Date: 20150721
  Serious: No
  Sender: FDA-Public Use
  Company Number: US-GLAXOSMITHKLINE-A1072961A

PATIENT

DRUGS (1)
  1. ALLI [Suspect]
     Active Substance: ORLISTAT
     Indication: WEIGHT DECREASED

REACTIONS (4)
  - Treatment noncompliance [Unknown]
  - Drug ineffective [Unknown]
  - Product quality issue [Unknown]
  - Ill-defined disorder [Recovered/Resolved]
